FAERS Safety Report 21544244 (Version 2)
Quarter: 2022Q4

REPORT INFORMATION
  Report Type: Spontaneous
  Country: FR (occurrence: FR)
  Receive Date: 20221102
  Receipt Date: 20221115
  Transmission Date: 20230113
  Serious: Yes (Death, Other)
  Sender: FDA-Public Use
  Company Number: None

PATIENT
  Age: 29 Year
  Sex: Female
  Weight: 90 kg

DRUGS (10)
  1. ONDANSETRON [Suspect]
     Active Substance: ONDANSETRON
     Indication: Nausea
     Route: 042
     Dates: start: 20220203, end: 20220204
  2. PROPRANOLOL HYDROCHLORIDE [Suspect]
     Active Substance: PROPRANOLOL HYDROCHLORIDE
     Indication: Abdominal pain
     Route: 048
     Dates: start: 20220204, end: 20220204
  3. TRIMEBUTINE [Suspect]
     Active Substance: TRIMEBUTINE
     Indication: Abdominal pain
     Dosage: 100MG IV ? 9H59/AT 9:59 AM
     Route: 042
     Dates: start: 20220202, end: 20220202
  4. TRIMEBUTINE [Suspect]
     Active Substance: TRIMEBUTINE
     Dosage: 02/02 : 100MG IV ? 2H40 ET 9H50/02 FEB :100 MG IV AT 2:40 AM AND 09:50 AM?UNIT DOSE - 200 MILLIGRAM
     Route: 042
     Dates: start: 20220202, end: 20220202
  5. METRONIDAZOLE [Suspect]
     Active Substance: METRONIDAZOLE
     Indication: Colitis
     Dosage: UNIT DOSE - 1000MG
     Route: 065
     Dates: start: 20220119, end: 20220203
  6. PANTOPRAZOLE [Suspect]
     Active Substance: PANTOPRAZOLE
     Indication: Product used for unknown indication
     Dosage: UNIT DOSE - 40MG?ROA-20053000
     Route: 048
     Dates: start: 20220203, end: 20220204
  7. VANCOMYCIN [Suspect]
     Active Substance: VANCOMYCIN
     Indication: Clostridium difficile colitis
     Dosage: UNIT DOSE - 3 DOSAGE FORM?ROA-20053000
     Route: 048
     Dates: start: 20220203, end: 20220204
  8. ACETAMINOPHEN [Suspect]
     Active Substance: ACETAMINOPHEN
     Indication: Abdominal pain
     Dosage: UNIT DOSE - 2G?ROA-20053000
     Route: 048
     Dates: start: 20220202, end: 20220204
  9. 1,3,5-TRIMETHOXYBENZENE [Concomitant]
     Active Substance: 1,3,5-TRIMETHOXYBENZENE
     Indication: Abdominal pain
     Dosage: UNIT DOSE - 120 MG?ROA-20045000
     Route: 042
     Dates: start: 20220202, end: 20220202
  10. METOCLOPRAMIDE HYDROCHLORIDE [Concomitant]
     Active Substance: METOCLOPRAMIDE HYDROCHLORIDE
     Indication: Nausea
     Dosage: UNIT DOSE - 10MG?ROA-20045000
     Route: 042
     Dates: start: 20220202, end: 20220202

REACTIONS (2)
  - Cardio-respiratory arrest [Fatal]
  - Tachycardia [Recovered/Resolved]

NARRATIVE: CASE EVENT DATE: 20220204
